FAERS Safety Report 16830303 (Version 1)
Quarter: 2019Q3

REPORT INFORMATION
  Report Type: Spontaneous
  Country: FR (occurrence: FR)
  Receive Date: 20190920
  Receipt Date: 20190920
  Transmission Date: 20191005
  Serious: Yes (Other)
  Sender: FDA-Public Use
  Company Number: FR-US-PROVELL PHARMACEUTICALS LLC-E2B_90004891

PATIENT
  Age: 52 Year
  Sex: Female
  Weight: 62 kg

DRUGS (5)
  1. EUTHYROX [Suspect]
     Active Substance: LEVOTHYROXINE SODIUM
     Indication: POSTPARTUM HYPOPITUITARISM
     Dosage: THERAPY START DATE: 10 JAN 2019
     Route: 048
     Dates: end: 20190218
  2. THYROFIX [Suspect]
     Active Substance: LEVOTHYROXINE SODIUM
     Indication: POSTPARTUM HYPOPITUITARISM
     Dosage: THERAPY START DATE: 17 MAR 2019?POSOLOGY ALTERNATING BETWEEN 100 AND 200 MICROGRAM
     Route: 048
     Dates: end: 20190804
  3. LEVOTHYROX 100 NF [Suspect]
     Active Substance: LEVOTHYROXINE SODIUM
     Indication: POSTPARTUM HYPOPITUITARISM
     Route: 048
     Dates: start: 20170302, end: 20170925
  4. EUTHYROX [Suspect]
     Active Substance: LEVOTHYROXINE SODIUM
     Indication: POSTPARTUM HYPOPITUITARISM
     Dosage: THERAPY START DATE: 14 DEC 2018
     Route: 048
     Dates: end: 20181216
  5. EUTHYRAL [Suspect]
     Active Substance: LEVOTHYROXINE SODIUM\LIOTHYRONINE SODIUM
     Indication: POSTPARTUM HYPOPITUITARISM
     Dosage: THERAPY START DATE: 07 JUN 2018
     Route: 048
     Dates: end: 20181105

REACTIONS (14)
  - Pain [Not Recovered/Not Resolved]
  - Tinnitus [Not Recovered/Not Resolved]
  - Affective disorder [Not Recovered/Not Resolved]
  - Depression [Not Recovered/Not Resolved]
  - Tri-iodothyronine free decreased [Not Recovered/Not Resolved]
  - Memory impairment [Not Recovered/Not Resolved]
  - Sleep disorder [Not Recovered/Not Resolved]
  - Muscle spasms [Not Recovered/Not Resolved]
  - Gastrointestinal disorder [Not Recovered/Not Resolved]
  - Bulimia nervosa [Not Recovered/Not Resolved]
  - Fatigue [Not Recovered/Not Resolved]
  - Flatulence [Not Recovered/Not Resolved]
  - Nausea [Not Recovered/Not Resolved]
  - Weight increased [Not Recovered/Not Resolved]

NARRATIVE: CASE EVENT DATE: 20170401
